FAERS Safety Report 13935900 (Version 1)
Quarter: 2017Q3

REPORT INFORMATION
  Report Type: Spontaneous
  Country: US (occurrence: US)
  Receive Date: 20170903
  Receipt Date: 20170903
  Transmission Date: 20171127
  Serious: Yes (Other)
  Sender: FDA-Public Use
  Company Number: None

PATIENT
  Age: 57 Year
  Sex: Male
  Weight: 105.75 kg

DRUGS (8)
  1. CALCIUM/D3 [Concomitant]
     Active Substance: CALCIUM\CHOLECALCIFEROL
  2. VITAMIN B12 [Concomitant]
     Active Substance: CYANOCOBALAMIN
  3. XARELTO [Suspect]
     Active Substance: RIVAROXABAN
     Indication: THROMBOSIS PROPHYLAXIS
     Dosage: ?          QUANTITY:10 TABLET(S); TWICE A DAY ORAL?
     Route: 048
  4. VITAMIN CENTRUM 50+ FOR MEN [Concomitant]
  5. VITAMIN D [Concomitant]
     Active Substance: CHOLECALCIFEROL
  6. OMEPRAZOLE. [Concomitant]
     Active Substance: OMEPRAZOLE
  7. CHLORPHENAMIRINE MALEATE (ANTIHISTIMINE) [Concomitant]
  8. NAPROXEN. [Concomitant]
     Active Substance: NAPROXEN

REACTIONS (3)
  - Musculoskeletal pain [None]
  - Hiccups [None]
  - Back pain [None]

NARRATIVE: CASE EVENT DATE: 20170825
